FAERS Safety Report 12956052 (Version 2)
Quarter: 2017Q2

REPORT INFORMATION
  Report Type: Spontaneous
  Country: US (occurrence: US)
  Receive Date: 20161118
  Receipt Date: 20170410
  Transmission Date: 20170830
  Serious: Yes (Hospitalization, Other)
  Sender: FDA-Public Use
  Company Number: US-JNJFOC-20161110310

PATIENT
  Age: 34 Year
  Sex: Female
  Weight: 122.47 kg

DRUGS (17)
  1. LEVAQUIN [Suspect]
     Active Substance: LEVOFLOXACIN
     Indication: MEDICAL DEVICE IMPLANTATION
     Route: 048
     Dates: start: 20100222
  2. LEVAQUIN [Suspect]
     Active Substance: LEVOFLOXACIN
     Indication: MEDICAL DEVICE IMPLANTATION
     Route: 048
     Dates: start: 20110608
  3. LEVAQUIN [Suspect]
     Active Substance: LEVOFLOXACIN
     Indication: MEDICAL DEVICE IMPLANTATION
     Route: 048
     Dates: start: 201411
  4. CIPRO [Suspect]
     Active Substance: CIPROFLOXACIN HYDROCHLORIDE
     Indication: PELVIC PAIN
     Route: 065
     Dates: start: 20090624
  5. LEVAQUIN [Suspect]
     Active Substance: LEVOFLOXACIN
     Indication: MEDICAL DEVICE IMPLANTATION
     Route: 048
     Dates: start: 20110207
  6. LEVOFLOXACIN. [Suspect]
     Active Substance: LEVOFLOXACIN
     Indication: MEDICAL DEVICE REMOVAL
     Route: 048
     Dates: start: 20141102
  7. LEVOFLOXACIN. [Suspect]
     Active Substance: LEVOFLOXACIN
     Indication: MEDICAL DEVICE REMOVAL
     Route: 048
     Dates: start: 201103
  8. CIPRO [Suspect]
     Active Substance: CIPROFLOXACIN HYDROCHLORIDE
     Indication: PELVIC PAIN
     Route: 065
     Dates: start: 20100214, end: 20100315
  9. LEVOFLOXACIN. [Suspect]
     Active Substance: LEVOFLOXACIN
     Indication: MEDICAL DEVICE REMOVAL
     Route: 048
     Dates: start: 20121101
  10. CIPRO [Suspect]
     Active Substance: CIPROFLOXACIN HYDROCHLORIDE
     Indication: BLOOD URINE PRESENT
     Route: 065
     Dates: start: 20100214, end: 20100315
  11. KLONOPIN [Concomitant]
     Active Substance: CLONAZEPAM
     Indication: ANXIETY
     Route: 065
  12. CIPRO [Suspect]
     Active Substance: CIPROFLOXACIN HYDROCHLORIDE
     Indication: BLOOD URINE PRESENT
     Route: 065
     Dates: start: 20130503
  13. CIPRO [Suspect]
     Active Substance: CIPROFLOXACIN HYDROCHLORIDE
     Indication: BLOOD URINE PRESENT
     Route: 065
     Dates: start: 20090624
  14. LEVOFLOXACIN. [Suspect]
     Active Substance: LEVOFLOXACIN
     Indication: MEDICAL DEVICE REMOVAL
     Route: 048
     Dates: start: 201105
  15. CIPRO [Suspect]
     Active Substance: CIPROFLOXACIN HYDROCHLORIDE
     Indication: BLOOD URINE PRESENT
     Route: 065
     Dates: start: 20110404, end: 20110523
  16. CIPRO [Suspect]
     Active Substance: CIPROFLOXACIN HYDROCHLORIDE
     Indication: PELVIC PAIN
     Route: 065
     Dates: start: 20130503
  17. CIPRO [Suspect]
     Active Substance: CIPROFLOXACIN HYDROCHLORIDE
     Indication: PELVIC PAIN
     Route: 065
     Dates: start: 20110404, end: 20110523

REACTIONS (32)
  - Toxicity to various agents [Not Recovered/Not Resolved]
  - Central nervous system lesion [Not Recovered/Not Resolved]
  - Dyspepsia [Not Recovered/Not Resolved]
  - Panic attack [Not Recovered/Not Resolved]
  - Neuropsychiatric symptoms [Not Recovered/Not Resolved]
  - Fatigue [Not Recovered/Not Resolved]
  - Insomnia [Not Recovered/Not Resolved]
  - Neuromyopathy [Not Recovered/Not Resolved]
  - Cardiovascular disorder [Not Recovered/Not Resolved]
  - Endocrine disorder [Not Recovered/Not Resolved]
  - Post-traumatic stress disorder [Not Recovered/Not Resolved]
  - Respiratory disorder [Not Recovered/Not Resolved]
  - Neuropathy peripheral [Not Recovered/Not Resolved]
  - Connective tissue disorder [Not Recovered/Not Resolved]
  - Vision blurred [Not Recovered/Not Resolved]
  - Mental status changes [Not Recovered/Not Resolved]
  - Pain [Not Recovered/Not Resolved]
  - Multiple chemical sensitivity [Not Recovered/Not Resolved]
  - Depression [Not Recovered/Not Resolved]
  - Muscular weakness [Not Recovered/Not Resolved]
  - Gastrooesophageal reflux disease [Not Recovered/Not Resolved]
  - Agitation [Not Recovered/Not Resolved]
  - Tachycardia [Not Recovered/Not Resolved]
  - Asthenia [Not Recovered/Not Resolved]
  - Small fibre neuropathy [Not Recovered/Not Resolved]
  - Muscle twitching [Not Recovered/Not Resolved]
  - Neuralgia [Not Recovered/Not Resolved]
  - Disturbance in attention [Not Recovered/Not Resolved]
  - Nutritional supplementation [Not Recovered/Not Resolved]
  - Amnesia [Not Recovered/Not Resolved]
  - Anxiety [Not Recovered/Not Resolved]
  - Nervous system disorder [Not Recovered/Not Resolved]

NARRATIVE: CASE EVENT DATE: 201002
